FAERS Safety Report 25985726 (Version 1)
Quarter: 2025Q4

REPORT INFORMATION
  Report Type: Spontaneous
  Country: US (occurrence: US)
  Receive Date: 20251101
  Receipt Date: 20251101
  Transmission Date: 20260117
  Serious: Yes (Hospitalization)
  Sender: GLAND PHARMA LTD
  Company Number: US-GLANDPHARMA-US-2025GLNSPO01989

PATIENT
  Sex: Female

DRUGS (2)
  1. GEMCITABINE [Suspect]
     Active Substance: GEMCITABINE
     Indication: Product used for unknown indication
     Route: 065
     Dates: end: 20250630
  2. DOCETAXEL [Suspect]
     Active Substance: DOCETAXEL
     Indication: Product used for unknown indication
     Dates: end: 20250630

REACTIONS (4)
  - Pyrexia [Recovered/Resolved]
  - Dyspnoea [Recovered/Resolved]
  - Haemoglobin decreased [Recovered/Resolved]
  - Total lung capacity decreased [Recovered/Resolved]

NARRATIVE: CASE EVENT DATE: 20250701
